FAERS Safety Report 13313211 (Version 1)
Quarter: 2017Q1

REPORT INFORMATION
  Report Type: Spontaneous
  Country: IT (occurrence: IT)
  Receive Date: 20170309
  Receipt Date: 20170309
  Transmission Date: 20170428
  Serious: Yes (Other)
  Sender: FDA-Public Use
  Company Number: IT-DSJP-DSE-2017-107524

PATIENT

DRUGS (1)
  1. GIANT 20 MG/ 5 MG [Suspect]
     Active Substance: AMLODIPINE BESYLATE\OLMESARTAN MEDOXOMIL
     Indication: HYPERTENSION
     Dosage: 20 MG / 5 MG, QD
     Route: 048

REACTIONS (2)
  - Tremor [Unknown]
  - Oedema [Unknown]

NARRATIVE: CASE EVENT DATE: 20140513
